FAERS Safety Report 9842382 (Version 1)
Quarter: 2014Q1

REPORT INFORMATION
  Report Type: Spontaneous
  Country: FR (occurrence: FR)
  Receive Date: 20140124
  Receipt Date: 20140124
  Transmission Date: 20141002
  Serious: Yes (Death, Life-Threatening, Hospitalization)
  Sender: FDA-Public Use
  Company Number: FR-BRISTOL-MYERS SQUIBB COMPANY-20034393

PATIENT
  Age: 50 Year
  Sex: Male

DRUGS (2)
  1. BARACLUDE TABS 0.5 MG [Suspect]
     Indication: HEPATITIS B
     Route: 048
     Dates: start: 20120522
  2. EVEROLIMUS [Concomitant]
     Dates: start: 201201, end: 20120507

REACTIONS (5)
  - Renal failure acute [Fatal]
  - Lymphadenopathy [Fatal]
  - Hepatocellular injury [Unknown]
  - Encephalopathy [Unknown]
  - Lactic acidosis [Unknown]
